FAERS Safety Report 13568217 (Version 2)
Quarter: 2017Q2

REPORT INFORMATION
  Report Type: Spontaneous
  Country: AR (occurrence: AR)
  Receive Date: 20170522
  Receipt Date: 20170524
  Transmission Date: 20170830
  Serious: Yes (Other)
  Sender: FDA-Public Use
  Company Number: AR-PFIZER INC-2016589125

PATIENT
  Age: 78 Year
  Sex: Female

DRUGS (3)
  1. SUTENT [Suspect]
     Active Substance: SUNITINIB MALATE
     Dosage: 50 MG, CYCLIC (4/2 SCHEME)
     Dates: start: 20160702
  2. SUTENT [Suspect]
     Active Substance: SUNITINIB MALATE
     Dosage: 50 MG, CYCLIC (4/2 SCHEME)
     Dates: start: 20160702
  3. SUTENT [Suspect]
     Active Substance: SUNITINIB MALATE
     Indication: METASTATIC RENAL CELL CARCINOMA
     Dosage: 50 MG, CYCLIC (4/2 SCHEME)
     Dates: start: 20160702

REACTIONS (20)
  - Nasal injury [Not Recovered/Not Resolved]
  - Abscess limb [Not Recovered/Not Resolved]
  - Eye injury [Not Recovered/Not Resolved]
  - Haematochezia [Not Recovered/Not Resolved]
  - Skin injury [Recovered/Resolved]
  - Asthenia [Not Recovered/Not Resolved]
  - Vomiting [Recovering/Resolving]
  - Skin exfoliation [Recovered/Resolved]
  - Dysphagia [Recovering/Resolving]
  - Oropharyngeal pain [Not Recovered/Not Resolved]
  - Gait disturbance [Recovering/Resolving]
  - Feeding disorder [Recovering/Resolving]
  - Eyelid margin crusting [Not Recovered/Not Resolved]
  - Diarrhoea [Recovering/Resolving]
  - Haematoma [Not Recovered/Not Resolved]
  - Glossodynia [Not Recovered/Not Resolved]
  - Stomatitis [Not Recovered/Not Resolved]
  - Eye irritation [Not Recovered/Not Resolved]
  - Diverticulum [Not Recovered/Not Resolved]
  - Malaise [Recovering/Resolving]

NARRATIVE: CASE EVENT DATE: 2016
